FAERS Safety Report 15628175 (Version 2)
Quarter: 2019Q3

REPORT INFORMATION
  Report Type: Report from Study
  Country: UG (occurrence: UG)
  Receive Date: 20181116
  Receipt Date: 20190826
  Transmission Date: 20191004
  Serious: Yes (Congenital Anomaly, Other)
  Sender: FDA-Public Use
  Company Number: UG-MYLANLABS-2018M1086989

PATIENT
  Sex: Female

DRUGS (5)
  1. FOLATE [Suspect]
     Active Substance: FOLATE SODIUM
     Indication: PRODUCT USED FOR UNKNOWN INDICATION
     Route: 064
  2. VITAMIN C [Suspect]
     Active Substance: ASCORBIC ACID
     Indication: PRODUCT USED FOR UNKNOWN INDICATION
     Route: 064
  3. EFAVIRENZ,LAMIVUDINE,TENOFOVIR MYLAN [Suspect]
     Active Substance: EFAVIRENZ\LAMIVUDINE\TENOFOVIR DISOPROXIL FUMARATE
     Indication: HIV INFECTION
     Dosage: 1 DF, QD
     Route: 064
     Dates: start: 20180607
  4. CETIRIZINE [Suspect]
     Active Substance: CETIRIZINE HYDROCHLORIDE
     Indication: PRODUCT USED FOR UNKNOWN INDICATION
     Route: 064
  5. SULPHAMETHOXAZOLE,TRIMETHOPRIM MYLAN [Suspect]
     Active Substance: SULFAMETHOXAZOLE\TRIMETHOPRIM
     Indication: PRODUCT USED FOR UNKNOWN INDICATION
     Route: 064

REACTIONS (2)
  - Foetal exposure during pregnancy [Recovered/Resolved]
  - Congenital umbilical hernia [Unknown]

NARRATIVE: CASE EVENT DATE: 2018
